FAERS Safety Report 24752339 (Version 1)
Quarter: 2024Q4

REPORT INFORMATION
  Report Type: Spontaneous
  Country: US (occurrence: US)
  Receive Date: 20241219
  Receipt Date: 20241219
  Transmission Date: 20250114
  Serious: Yes (Other)
  Sender: AUROBINDO
  Company Number: US-AUROBINDO-AUR-APL-2024-061637

PATIENT
  Age: 33 Year
  Sex: Male

DRUGS (2)
  1. VALGANCICLOVIR [Suspect]
     Active Substance: VALGANCICLOVIR
     Indication: Antiviral prophylaxis
     Dosage: DOSED PER EGFR FOR CMV HR
     Route: 065
  2. MARIBAVIR [Concomitant]
     Active Substance: MARIBAVIR
     Indication: Cytomegalovirus nephritis
     Dosage: 400 MILLIGRAM, TWO TIMES A DAY
     Route: 065

REACTIONS (1)
  - Drug ineffective [Unknown]
